FAERS Safety Report 8616693-9 (Version None)
Quarter: 2012Q3

REPORT INFORMATION
  Report Type: 
  Country: None (occurrence: None)
  Receive Date: 20120823
  Receipt Date: 20120802
  Transmission Date: 20120928
  Serious: No
  Sender: FDA-Public Use
  Company Number: US-009507513-1208USA001900

PATIENT

DRUGS (3)
  1. REBETOL [Suspect]
     Dosage: 200 MG, BID
     Route: 048
  2. VICTRELIS [Suspect]
     Dosage: 200 MG, UNK
  3. PEGASYS [Suspect]
     Dosage: 180MCG/0.5ML PFS

REACTIONS (2)
  - DYSPNOEA [None]
  - FATIGUE [None]
